FAERS Safety Report 8972174 (Version 2)
Quarter: 2013Q1

REPORT INFORMATION
  Report Type: Spontaneous
  Country: US (occurrence: US)
  Receive Date: 20121218
  Receipt Date: 20130123
  Transmission Date: 20140127
  Serious: Yes (Other)
  Sender: FDA-Public Use
  Company Number: US-US-EMD SERONO, INC.-7182258

PATIENT
  Age: 36 Year
  Sex: Female
  Weight: 79 kg

DRUGS (4)
  1. REBIF [Suspect]
     Indication: MULTIPLE SCLEROSIS
     Route: 058
     Dates: start: 200502
  2. TOVIAZ [Concomitant]
     Indication: INCONTINENCE
  3. MIRENA [Concomitant]
     Indication: CONTRACEPTION
  4. FIORINAL [Concomitant]
     Indication: HEADACHE

REACTIONS (2)
  - Retinal haemorrhage [Not Recovered/Not Resolved]
  - Contusion [Not Recovered/Not Resolved]
